FAERS Safety Report 8470345-7 (Version None)
Quarter: 2012Q2

REPORT INFORMATION
  Report Type: 
  Country: None (occurrence: None)
  Receive Date: 20120627
  Receipt Date: 20120621
  Transmission Date: 20120825
  Serious: No
  Sender: FDA-Public Use
  Company Number: US-PFIZER INC-2012150311

PATIENT
  Sex: Female
  Weight: 89.796 kg

DRUGS (3)
  1. DEPO-PROVERA [Suspect]
     Indication: CONTRACEPTION
     Dosage: UNK, EVERY 3 MONTHS
     Route: 030
     Dates: start: 19980101
  2. DEPO-PROVERA [Suspect]
     Dosage: UNK, EVERY 3 MONTHS
     Dates: start: 20120201
  3. FLONASE [Concomitant]
     Indication: HYPERSENSITIVITY
     Dosage: UNK

REACTIONS (3)
  - HEADACHE [None]
  - DEPRESSION [None]
  - CRYING [None]
